FAERS Safety Report 19165403 (Version 1)
Quarter: 2021Q2

REPORT INFORMATION
  Report Type: Spontaneous
  Country: FR (occurrence: FR)
  Receive Date: 20210421
  Receipt Date: 20210421
  Transmission Date: 20210717
  Serious: Yes (Hospitalization)
  Sender: FDA-Public Use
  Company Number: FR-TAKEDA-2021TUS024442

PATIENT
  Age: 38 Year
  Sex: Female

DRUGS (2)
  1. PENTASA [Suspect]
     Active Substance: MESALAMINE
     Dosage: 1 DOSAGE FORM, QD
     Route: 054
     Dates: start: 20210210, end: 20210227
  2. PENTASA [Suspect]
     Active Substance: MESALAMINE
     Indication: PROCTITIS HAEMORRHAGIC
     Dosage: 1 DOSAGE FORM
     Route: 054
     Dates: start: 20210113, end: 20210124

REACTIONS (1)
  - Pancreatitis acute [Recovered/Resolved]

NARRATIVE: CASE EVENT DATE: 20210227
